FAERS Safety Report 4738105-8 (Version None)
Quarter: 2005Q3

REPORT INFORMATION
  Report Type: 
  Country: None (occurrence: None)
  Receive Date: 20050805
  Receipt Date: 20050805
  Transmission Date: 20060218
  Serious: Yes (Death)
  Sender: FDA-Public Use
  Company Number: None

PATIENT
  Age: 79 Year
  Sex: Female
  Weight: 54.4 kg

DRUGS (6)
  1. INTEGRILIN [Suspect]
     Indication: ACUTE MYOCARDIAL INFARCTION
     Dosage: IV
     Route: 042
     Dates: start: 20040124
  2. INTEGRILIN [Suspect]
     Indication: CORONARY ANGIOPLASTY
     Dosage: IV
     Route: 042
     Dates: start: 20040124
  3. HEPARIN [Suspect]
     Indication: ACUTE MYOCARDIAL INFARCTION
     Dosage: IV
     Route: 042
     Dates: start: 20040124
  4. HEPARIN [Suspect]
     Indication: CORONARY ANGIOPLASTY
     Dosage: IV
     Route: 042
     Dates: start: 20040124
  5. ASPIRIN [Concomitant]
  6. PLAVIX [Concomitant]

REACTIONS (1)
  - CEREBRAL HAEMORRHAGE [None]
